FAERS Safety Report 4534410-9 (Version None)
Quarter: 2004Q4

REPORT INFORMATION
  Report Type: 
  Country: None (occurrence: None)
  Receive Date: 20041222
  Receipt Date: 20041214
  Transmission Date: 20050328
  Serious: Yes (Other)
  Sender: FDA-Public Use
  Company Number: US-JNJFOC-20041203929

PATIENT
  Age: 47 Year
  Sex: Female
  Weight: 99.79 kg

DRUGS (9)
  1. DURAGESIC [Suspect]
     Route: 062
     Dates: start: 20041101
  2. DURAGESIC [Suspect]
     Route: 062
     Dates: start: 20041101
  3. PREDNISONE [Concomitant]
     Indication: INFLAMMATION
     Route: 049
     Dates: start: 20041001
  4. DARVOCET [Concomitant]
     Route: 049
  5. DARVOCET [Concomitant]
     Indication: PAIN
     Route: 049
  6. KLONIPIN [Concomitant]
     Route: 049
  7. NEUROTONIN [Concomitant]
     Route: 049
  8. HYDROXYCHLOROQUINE [Concomitant]
     Route: 049
  9. PREVACID [Concomitant]
     Route: 049

REACTIONS (4)
  - BUTTOCK PAIN [None]
  - PAIN IN EXTREMITY [None]
  - SKIN INDURATION [None]
  - WEIGHT INCREASED [None]
